FAERS Safety Report 4279354-5 (Version None)
Quarter: 2004Q1

REPORT INFORMATION
  Report Type: 
  Country: None (occurrence: None)
  Receive Date: 20040123
  Receipt Date: 20040115
  Transmission Date: 20041129
  Serious: Yes (Death)
  Sender: FDA-Public Use
  Company Number: US-JNJFOC-20031102255

PATIENT
  Age: 70 Year
  Sex: Female
  Weight: 61.2356 kg

DRUGS (2)
  1. DURAGESIC [Suspect]
     Indication: PAIN
     Dosage: TRANSDERMAL
     Dates: end: 20030913
  2. NITROGLYCERINE (GLYCERYL TRINTRATE) [Concomitant]

REACTIONS (4)
  - CACHEXIA [None]
  - CLOSTRIDIUM COLITIS [None]
  - FATIGUE [None]
  - PERFORMANCE STATUS DECREASED [None]
